FAERS Safety Report 5798014-2 (Version None)
Quarter: 2008Q3

REPORT INFORMATION
  Report Type: 
  Country: None (occurrence: None)
  Receive Date: 20080702
  Receipt Date: 20070416
  Transmission Date: 20090109
  Serious: Yes (Other)
  Sender: FDA-Public Use
  Company Number: D0051844A

PATIENT

DRUGS (1)
  1. HALFAN [Suspect]
     Route: 065
     Dates: start: 19950101

REACTIONS (1)
  - MYOCARDIAL INFARCTION [None]
